FAERS Safety Report 20364987 (Version 4)
Quarter: 2022Q2

REPORT INFORMATION
  Report Type: Report from Study
  Country: MX (occurrence: MX)
  Receive Date: 20220122
  Receipt Date: 20220527
  Transmission Date: 20220721
  Serious: Yes (Death, Other)
  Sender: FDA-Public Use
  Company Number: MX-NOVARTISPH-NVSC2022MX012788

PATIENT
  Age: 86 Year
  Sex: Male
  Weight: 68 kg

DRUGS (5)
  1. ENTRESTO [Suspect]
     Active Substance: SACUBITRIL\VALSARTAN
     Indication: Cardiac disorder
     Dosage: 1 DOSAGE FORM (50 MG), BID
     Route: 048
     Dates: start: 202110
  2. ENTRESTO [Suspect]
     Active Substance: SACUBITRIL\VALSARTAN
     Indication: Ischaemia
     Dosage: 50 MG, Q12H (1 OF 50 MG)
     Route: 048
     Dates: start: 202110
  3. ENTRESTO [Suspect]
     Active Substance: SACUBITRIL\VALSARTAN
     Indication: Cardiac disorder
     Dosage: 1 DOSAGE FORM, QD
     Route: 048
  4. ATORVASTATIN [Suspect]
     Active Substance: ATORVASTATIN
     Indication: Cardiac disorder
     Dosage: 1 DOSAGE FORM, QD
     Route: 048
     Dates: start: 202110
  5. AMLODIPINE [Concomitant]
     Active Substance: AMLODIPINE BESYLATE
     Indication: Hypertension
     Dosage: 1 DOSAGE FORM, QD (STARTED 40 YEARS AGO)
     Route: 048
     Dates: end: 202201

REACTIONS (8)
  - Death [Fatal]
  - Renal failure [Not Recovered/Not Resolved]
  - Swelling [Recovered/Resolved]
  - Hypotension [Not Recovered/Not Resolved]
  - Urinary tract infection [Recovered/Resolved]
  - Blood thyroid stimulating hormone increased [Unknown]
  - Inappropriate schedule of product administration [Recovered/Resolved]
  - Off label use [Unknown]

NARRATIVE: CASE EVENT DATE: 20211001
